FAERS Safety Report 4842488-8 (Version None)
Quarter: 2005Q4

REPORT INFORMATION
  Report Type: 
  Country: None (occurrence: None)
  Receive Date: 20051129
  Receipt Date: 20051117
  Transmission Date: 20060501
  Serious: Yes (Other)
  Sender: FDA-Public Use
  Company Number: US-2005-023248

PATIENT
  Age: 32 Year
  Sex: Female

DRUGS (2)
  1. MIRENA [Suspect]
     Indication: CONTRACEPTION
     Dosage: 20 UG/DAY, CONT, INTRA-UTERINE
     Route: 015
     Dates: start: 20051103, end: 20051103
  2. ORTHO TRI-CYCLEN LO (NORGESTIMATE) [Concomitant]

REACTIONS (3)
  - CONVULSION [None]
  - PROCEDURAL COMPLICATION [None]
  - SYNCOPE VASOVAGAL [None]
